FAERS Safety Report 15848473 (Version 3)
Quarter: 2019Q1

REPORT INFORMATION
  Report Type: Spontaneous
  Country: TT (occurrence: TT)
  Receive Date: 20190121
  Receipt Date: 20190307
  Transmission Date: 20190417
  Serious: Yes (Hospitalization, Other)
  Sender: FDA-Public Use
  Company Number: TT-ELI_LILLY_AND_COMPANY-TT201901007304

PATIENT
  Age: 63 Year
  Sex: Female

DRUGS (2)
  1. OXYGEN. [Concomitant]
     Active Substance: OXYGEN
     Indication: DYSPNOEA
  2. ERBITUX [Suspect]
     Active Substance: CETUXIMAB
     Indication: COLORECTAL CANCER
     Dosage: 400 MG, WEEKLY (1/W)
     Route: 042
     Dates: start: 20180912, end: 20181219

REACTIONS (5)
  - Decreased appetite [Unknown]
  - Metastases to lung [Not Recovered/Not Resolved]
  - Dehydration [Unknown]
  - Metastases to spine [Not Recovered/Not Resolved]
  - Asthenia [Unknown]

NARRATIVE: CASE EVENT DATE: 20181128
